FAERS Safety Report 23441818 (Version 3)
Quarter: 2024Q1

REPORT INFORMATION
  Report Type: Spontaneous
  Country: CL (occurrence: CL)
  Receive Date: 20240125
  Receipt Date: 20240320
  Transmission Date: 20240409
  Serious: Yes (Other)
  Sender: FDA-Public Use
  Company Number: CL-ROCHE-2927349

PATIENT
  Age: 35 Year
  Sex: Female

DRUGS (2)
  1. CAPECITABINE [Suspect]
     Active Substance: CAPECITABINE
     Indication: Breast cancer
     Dosage: ON 12/APR/2021, SHE RECEIVED MOST RECENT DOSE PRIOR TO EVENT OF FEET BLEEDING ?ON 09/DEC/2020, , SH
     Route: 048
  2. LEVOCETIRIZINE [Concomitant]
     Active Substance: LEVOCETIRIZINE
     Route: 048
     Dates: start: 20181029

REACTIONS (13)
  - Haemorrhage [Recovered/Resolved]
  - Erythema [Recovered/Resolved]
  - Abdominal pain upper [Recovered/Resolved]
  - Macrocytosis [Not Recovered/Not Resolved]
  - Nasopharyngitis [Recovered/Resolved]
  - Pain in extremity [Unknown]
  - Fatigue [Unknown]
  - Eye irritation [Unknown]
  - Limb injury [Recovered/Resolved]
  - Dry eye [Unknown]
  - Blood loss anaemia [Recovered/Resolved]
  - Diarrhoea [Recovered/Resolved]
  - Thrombophlebitis [Recovered/Resolved]

NARRATIVE: CASE EVENT DATE: 20200514
